FAERS Safety Report 26038025 (Version 1)
Quarter: 2025Q4

REPORT INFORMATION
  Report Type: Other
  Country: EU (occurrence: EU)
  Receive Date: 20251112
  Receipt Date: 20251112
  Transmission Date: 20260118
  Serious: Yes (Other)
  Sender: SIEMENS
  Company Number: EU-IBAP-2025000675

PATIENT
  Age: 54 Year
  Sex: Male
  Weight: 82 kg

DRUGS (5)
  1. FLUDEOXYGLUCOSE F-18 [Suspect]
     Active Substance: FLUDEOXYGLUCOSE F-18
     Indication: Aspergillus infection
     Dosage: 205.98 MBQ
     Route: 042
     Dates: start: 20250908, end: 20250908
  2. EBASTINE [Concomitant]
     Active Substance: EBASTINE
     Indication: Mast cell activation syndrome
     Dosage: 5 MG 3 TIMES DAILY
     Route: 048
  3. FEXOFENADINE [Concomitant]
     Active Substance: FEXOFENADINE HYDROCHLORIDE
     Indication: Mast cell activation syndrome
     Dosage: 1 DOSAGE FORM PER DAY
     Route: 048
  4. LEVOCETIRIZINE DIHYDROCHLORIDE [Concomitant]
     Active Substance: LEVOCETIRIZINE DIHYDROCHLORIDE
     Indication: Mast cell activation syndrome
     Dosage: 5 MG PER DAY
     Route: 048
  5. VFEND [Concomitant]
     Active Substance: VORICONAZOLE
     Indication: Aspergillus infection
     Dosage: 200 MG PER DAY
     Route: 048
     Dates: end: 202510

REACTIONS (2)
  - Angioedema [Recovering/Resolving]
  - Off label use [Recovered/Resolved]

NARRATIVE: CASE EVENT DATE: 20250908
